FAERS Safety Report 23102253 (Version 1)
Quarter: 2023Q4

REPORT INFORMATION
  Report Type: Spontaneous
  Country: US (occurrence: US)
  Receive Date: 20231025
  Receipt Date: 20231025
  Transmission Date: 20240109
  Serious: Yes (Death, Hospitalization)
  Sender: FDA-Public Use
  Company Number: US-STRIDES ARCOLAB LIMITED-2023SP015882

PATIENT
  Age: 53 Year
  Sex: Female

DRUGS (10)
  1. OSELTAMIVIR [Suspect]
     Active Substance: OSELTAMIVIR
     Indication: COVID-19
     Dosage: UNK
     Route: 065
  2. CEFTRIAXONE [Suspect]
     Active Substance: CEFTRIAXONE\CEFTRIAXONE SODIUM
     Indication: COVID-19
     Dosage: UNK
     Route: 065
  3. HYDROXYCHLOROQUINE [Suspect]
     Active Substance: HYDROXYCHLOROQUINE
     Indication: COVID-19
     Dosage: UNK
     Route: 065
  4. AZITHROMYCIN [Suspect]
     Active Substance: AZITHROMYCIN
     Indication: COVID-19
     Dosage: UNK
     Route: 065
  5. ENOXAPARIN [Suspect]
     Active Substance: ENOXAPARIN
     Indication: Prophylaxis
     Dosage: UNK
     Route: 058
  6. FENTANYL [Suspect]
     Active Substance: FENTANYL\FENTANYL CITRATE
     Indication: Sedative therapy
     Dosage: UNK
     Route: 065
  7. MIDAZOLAM [Suspect]
     Active Substance: MIDAZOLAM
     Indication: Sedative therapy
     Dosage: UNK
     Route: 065
  8. CISATRACURIUM [Suspect]
     Active Substance: CISATRACURIUM
     Indication: Muscle relaxant therapy
     Dosage: UNK
     Route: 065
  9. ALTEPLASE [Suspect]
     Active Substance: ALTEPLASE
     Indication: Thrombolysis
     Dosage: UNK
     Route: 065
  10. NOREPINEPHRINE [Suspect]
     Active Substance: NOREPINEPHRINE
     Indication: Product used for unknown indication
     Dosage: UNK
     Route: 065

REACTIONS (2)
  - Death [Fatal]
  - Off label use [Unknown]
